FAERS Safety Report 14599392 (Version 1)
Quarter: 2018Q1

REPORT INFORMATION
  Report Type: Spontaneous
  Country: US (occurrence: US)
  Receive Date: 20180305
  Receipt Date: 20180305
  Transmission Date: 20180509
  Serious: No
  Sender: FDA-Public Use
  Company Number: US-MYLANLABS-2018M1011508

PATIENT
  Age: 25 Year
  Sex: Male
  Weight: 75 kg

DRUGS (1)
  1. DYMISTA [Suspect]
     Active Substance: AZELASTINE HYDROCHLORIDE\FLUTICASONE PROPIONATE
     Indication: NASAL CONGESTION
     Dosage: UNK, BID
     Route: 045
     Dates: start: 20180105

REACTIONS (2)
  - Insomnia [Recovered/Resolved]
  - Psychomotor hyperactivity [Recovered/Resolved]

NARRATIVE: CASE EVENT DATE: 201801
